FAERS Safety Report 12707688 (Version 2)
Quarter: 2016Q3

REPORT INFORMATION
  Report Type: Spontaneous
  Country: US (occurrence: US)
  Receive Date: 20160901
  Receipt Date: 20160905
  Transmission Date: 20161109
  Serious: No
  Sender: FDA-Public Use
  Company Number: US-PFIZER INC-2016412210

PATIENT
  Age: 55 Year
  Sex: Female
  Weight: 89.81 kg

DRUGS (2)
  1. CLINDAMYCIN HCL [Suspect]
     Active Substance: CLINDAMYCIN HYDROCHLORIDE
     Indication: INFECTION
     Dosage: 150 MG, 3X/DAY
     Route: 048
     Dates: start: 20160825
  2. CLINDAMYCIN HCL [Suspect]
     Active Substance: CLINDAMYCIN HYDROCHLORIDE
     Dosage: 300 MG, 4X/DAY
     Route: 048

REACTIONS (5)
  - Nodule [Unknown]
  - Facial pain [Unknown]
  - Disease progression [Unknown]
  - Drug ineffective [Unknown]
  - Swelling face [Unknown]
